FAERS Safety Report 7067348-6 (Version None)
Quarter: 2010Q4

REPORT INFORMATION
  Report Type: 
  Country: None (occurrence: None)
  Receive Date: 20101022
  Receipt Date: 20101022
  Transmission Date: 20110411
  Serious: Yes (Hospitalization)
  Sender: FDA-Public Use
  Company Number: None

PATIENT
  Sex: Female
  Weight: 74 kg

DRUGS (1)
  1. MEMANTINE HYDROCHLORIDE [Suspect]
     Dosage: 1270 MG

REACTIONS (4)
  - CONVULSION [None]
  - EYE INJURY [None]
  - FALL [None]
  - WRIST FRACTURE [None]
